FAERS Safety Report 13378274 (Version 1)
Quarter: 2017Q1

REPORT INFORMATION
  Report Type: Spontaneous
  Country: IE (occurrence: IE)
  Receive Date: 20170328
  Receipt Date: 20170328
  Transmission Date: 20170429
  Serious: Yes (Other)
  Sender: FDA-Public Use
  Company Number: IE-MYLANLABS-2017M1018621

PATIENT

DRUGS (1)
  1. LITHIUM. [Suspect]
     Active Substance: LITHIUM
     Indication: BIPOLAR DISORDER
     Dosage: LONG TERM TREATMENT
     Route: 065

REACTIONS (2)
  - Hyperparathyroidism [Recovered/Resolved]
  - Parathyroid tumour benign [Recovered/Resolved]
